FAERS Safety Report 7505659-8 (Version None)
Quarter: 2011Q2

REPORT INFORMATION
  Report Type: 
  Country: None (occurrence: None)
  Receive Date: 20110526
  Receipt Date: 20110518
  Transmission Date: 20111010
  Serious: Yes (Disabling, Other)
  Sender: FDA-Public Use
  Company Number: JP-BAYER-201015684BYL

PATIENT
  Age: 52 Year
  Sex: Male
  Weight: 51 kg

DRUGS (3)
  1. SUTENT [Concomitant]
     Indication: METASTASES TO LYMPH NODES
     Dosage: 3 DF, QD
     Dates: start: 20100510
  2. NEXAVAR [Suspect]
     Indication: RENAL CELL CARCINOMA
     Dosage: 200 MG, BID
     Route: 048
     Dates: start: 20090319, end: 20090322
  3. NEXAVAR [Suspect]
     Dosage: 800 MG (DAILY DOSE), , ORAL
     Route: 048
     Dates: start: 20090323, end: 20100317

REACTIONS (4)
  - PALMAR-PLANTAR ERYTHRODYSAESTHESIA SYNDROME [None]
  - NERVOUS SYSTEM DISORDER [None]
  - DIARRHOEA [None]
  - CEREBRAL INFARCTION [None]
